FAERS Safety Report 14422579 (Version 1)
Quarter: 2018Q1

REPORT INFORMATION
  Report Type: Spontaneous
  Country: US (occurrence: US)
  Receive Date: 20180123
  Receipt Date: 20180123
  Transmission Date: 20180509
  Serious: No
  Sender: FDA-Public Use
  Company Number: US-INSYS THERAPEUTICS, INC-INS201710-000634

PATIENT
  Sex: Male
  Weight: 63.5 kg

DRUGS (22)
  1. SYNDROS [Suspect]
     Active Substance: DRONABINOL
     Indication: NAUSEA
     Dates: start: 20171011, end: 20171025
  2. CYCLOBENZAPRINE. [Concomitant]
     Active Substance: CYCLOBENZAPRINE
  3. LIDOCAINE. [Concomitant]
     Active Substance: LIDOCAINE
  4. BYSTOLIC [Concomitant]
     Active Substance: NEBIVOLOL HYDROCHLORIDE
  5. HYDROXYUREA. [Concomitant]
     Active Substance: HYDROXYUREA
  6. ACYCLOVIR. [Concomitant]
     Active Substance: ACYCLOVIR
  7. ADVAIR DISKUS [Concomitant]
     Active Substance: FLUTICASONE PROPIONATE\SALMETEROL XINAFOATE
  8. ALBUTEROL. [Concomitant]
     Active Substance: ALBUTEROL
     Indication: WHEEZING
  9. IRON [Concomitant]
     Active Substance: IRON
  10. SUBSYS [Suspect]
     Active Substance: FENTANYL
  11. DIAZEPAM. [Concomitant]
     Active Substance: DIAZEPAM
  12. MOVANTIK [Concomitant]
     Active Substance: NALOXEGOL OXALATE
  13. EVZIO [Concomitant]
     Active Substance: NALOXONE HYDROCHLORIDE
  14. SINGULAIR [Concomitant]
     Active Substance: MONTELUKAST SODIUM
  15. PREDNISONE. [Concomitant]
     Active Substance: PREDNISONE
  16. OXYCODONE HYDROCHLORIDE. [Concomitant]
     Active Substance: OXYCODONE HYDROCHLORIDE
  17. SYNDROS [Suspect]
     Active Substance: DRONABINOL
     Indication: VOMITING
  18. PERCOCET [Concomitant]
     Active Substance: ACETAMINOPHEN\OXYCODONE HYDROCHLORIDE
  19. EXALGO [Concomitant]
     Active Substance: HYDROMORPHONE HYDROCHLORIDE
  20. SUBSYS [Suspect]
     Active Substance: FENTANYL
     Indication: PAIN
     Dates: start: 2017
  21. ASPIRIN. [Concomitant]
     Active Substance: ASPIRIN
     Indication: MYOCARDIAL INFARCTION
  22. MIN-TRAN [Concomitant]

REACTIONS (3)
  - Restless legs syndrome [Unknown]
  - Constipation [Unknown]
  - Condition aggravated [Unknown]
